FAERS Safety Report 16549033 (Version 2)
Quarter: 2019Q3

REPORT INFORMATION
  Report Type: Spontaneous
  Country: US (occurrence: US)
  Receive Date: 20190709
  Receipt Date: 20190919
  Transmission Date: 20191004
  Serious: No
  Sender: FDA-Public Use
  Company Number: US-ACTELION-A-NJ2019-192709

PATIENT
  Sex: Male

DRUGS (2)
  1. UPTRAVI [Suspect]
     Active Substance: SELEXIPAG
     Indication: PULMONARY ARTERIAL HYPERTENSION
     Dosage: 200 MCG, BID
     Route: 048
     Dates: start: 20190620
  2. UPTRAVI [Suspect]
     Active Substance: SELEXIPAG
     Dosage: 1000 MCG, BID
     Route: 048
     Dates: start: 20190607

REACTIONS (7)
  - Urine analysis abnormal [Unknown]
  - Headache [Unknown]
  - Constipation [Unknown]
  - Muscle spasms [Unknown]
  - Diarrhoea [Unknown]
  - Flatulence [Unknown]
  - Feeling abnormal [Unknown]
